FAERS Safety Report 6023798-8 (Version None)
Quarter: 2008Q4

REPORT INFORMATION
  Report Type: 
  Country: None (occurrence: None)
  Receive Date: 20081230
  Receipt Date: 20081219
  Transmission Date: 20090506
  Serious: Yes (Hospitalization, Other)
  Sender: FDA-Public Use
  Company Number: US-CELGENEUS-163-20785-07040446

PATIENT
  Sex: Female
  Weight: 51.756 kg

DRUGS (13)
  1. THALOMID [Suspect]
     Route: 048
     Dates: start: 20070301, end: 20070314
  2. TOPOTECAN [Suspect]
     Route: 051
     Dates: start: 20070301
  3. PROVIGIL [Concomitant]
     Indication: FATIGUE
     Route: 048
     Dates: start: 20060301
  4. ZELNORM [Concomitant]
     Indication: IRRITABLE BOWEL SYNDROME
     Route: 065
  5. COMPAZINE [Concomitant]
     Indication: NAUSEA
     Route: 065
     Dates: start: 20060301
  6. ATIVAN [Concomitant]
     Indication: NAUSEA
     Route: 065
     Dates: start: 20060301
  7. TRAZODONE [Concomitant]
     Indication: INSOMNIA
     Route: 065
     Dates: start: 20060301
  8. DEXAMETHASONE [Concomitant]
     Indication: NAUSEA
     Route: 065
     Dates: start: 20060301
  9. MARINOL [Concomitant]
     Indication: NAUSEA
     Dosage: 1-2 CAPS
     Route: 048
     Dates: start: 20060301
  10. BONIVA [Concomitant]
     Indication: DRUG USE FOR UNKNOWN INDICATION
     Route: 048
  11. MIRALAX [Concomitant]
     Indication: DRUG USE FOR UNKNOWN INDICATION
     Dosage: 2 TSP IN 8OZ FLUIDS
     Route: 048
  12. COLACE [Concomitant]
     Indication: DRUG USE FOR UNKNOWN INDICATION
     Route: 048
  13. EMEND TRI-FOLD [Concomitant]
     Indication: DRUG USE FOR UNKNOWN INDICATION

REACTIONS (10)
  - ABDOMINAL DISCOMFORT [None]
  - CHEST DISCOMFORT [None]
  - CHILLS [None]
  - CONSTIPATION [None]
  - DYSPNOEA [None]
  - FATIGUE [None]
  - INTERSTITIAL LUNG DISEASE [None]
  - NAUSEA [None]
  - NEUROPATHY PERIPHERAL [None]
  - THROMBOCYTOPENIA [None]
